FAERS Safety Report 10545046 (Version 4)
Quarter: 2015Q2

REPORT INFORMATION
  Report Type: Spontaneous
  Country: US (occurrence: US)
  Receive Date: 20141027
  Receipt Date: 20150611
  Transmission Date: 20150821
  Serious: Yes (Hospitalization, Other)
  Sender: FDA-Public Use
  Company Number: US-BAYER-2014-155817

PATIENT
  Age: 37 Year
  Sex: Female
  Weight: 65.76 kg

DRUGS (2)
  1. MIRENA [Suspect]
     Active Substance: LEVONORGESTREL
     Indication: CONTRACEPTION
     Dosage: 20 MCG/24HR, CONT
     Route: 015
     Dates: start: 20110621, end: 20120120
  2. MIRENA [Suspect]
     Active Substance: LEVONORGESTREL
     Indication: MENORRHAGIA

REACTIONS (17)
  - Vaginal haemorrhage [None]
  - Device dislocation [None]
  - Emotional distress [None]
  - Anxiety [Not Recovered/Not Resolved]
  - Device dislocation [None]
  - Depression [Not Recovered/Not Resolved]
  - Fungal infection [None]
  - Injury [None]
  - Dysmenorrhoea [None]
  - Device issue [None]
  - Device difficult to use [None]
  - Pain [None]
  - Vaginal discharge [None]
  - Vaginal flatulence [None]
  - Vaginal odour [None]
  - Dyspareunia [None]
  - Abdominal pain upper [None]

NARRATIVE: CASE EVENT DATE: 2011
